FAERS Safety Report 25298723 (Version 2)
Quarter: 2025Q2

REPORT INFORMATION
  Report Type: Report from Study
  Country: US (occurrence: US)
  Receive Date: 20250512
  Receipt Date: 20250627
  Transmission Date: 20250716
  Serious: Yes (Death, Other)
  Sender: ROCHE
  Company Number: US-ROCHE-10000275423

PATIENT

DRUGS (2)
  1. RITUXIMAB [Suspect]
     Active Substance: RITUXIMAB
     Indication: Non-Hodgkin^s lymphoma
     Route: 065
  2. RITUXIMAB [Suspect]
     Active Substance: RITUXIMAB
     Indication: Autoimmune disorder

REACTIONS (4)
  - Immunodeficiency [Unknown]
  - Bronchopulmonary aspergillosis [Fatal]
  - Transfusion reaction [Fatal]
  - Functional gastrointestinal disorder [Unknown]
